FAERS Safety Report 9682194 (Version 1)
Quarter: 2013Q4

REPORT INFORMATION
  Report Type: Report from Study
  Country: US (occurrence: US)
  Receive Date: 20131111
  Receipt Date: 20131111
  Transmission Date: 20140711
  Serious: Yes (Hospitalization)
  Sender: FDA-Public Use
  Company Number: US-ABBVIE-13P-163-1166001-00

PATIENT
  Age: 52 Year
  Sex: Female

DRUGS (8)
  1. HUMIRA PFS [Suspect]
     Indication: ANKYLOSING SPONDYLITIS
     Dates: start: 201111
  2. HUMIRA PEN [Suspect]
     Indication: ANKYLOSING SPONDYLITIS
  3. RESTASIS [Concomitant]
     Indication: DRY EYE
     Dosage: 1 DROP EACH EYE BID
  4. NORVASC [Concomitant]
     Indication: PRODUCT USED FOR UNKNOWN INDICATION
  5. NORVASC [Concomitant]
  6. LORSARTAN POTASSIUM [Concomitant]
     Indication: PRODUCT USED FOR UNKNOWN INDICATION
  7. LORSARTAN POTASSIUM [Concomitant]
  8. STERIOD [Concomitant]
     Indication: PRODUCT USED FOR UNKNOWN INDICATION
     Dates: start: 201305

REACTIONS (12)
  - Rectal haemorrhage [Recovering/Resolving]
  - Diverticulitis [Recovering/Resolving]
  - Constipation [Unknown]
  - Dyspnoea [Unknown]
  - Sensation of pressure [Unknown]
  - Injection site rash [Recovered/Resolved]
  - Back disorder [Unknown]
  - Musculoskeletal disorder [Unknown]
  - Intraocular pressure increased [Recovered/Resolved]
  - Polyarthritis [Unknown]
  - Gastrooesophageal reflux disease [Unknown]
  - Blood cholesterol increased [Unknown]
